FAERS Safety Report 20446671 (Version 3)
Quarter: 2022Q1

REPORT INFORMATION
  Report Type: Report from Study
  Country: DE (occurrence: DE)
  Receive Date: 20220208
  Receipt Date: 20220302
  Transmission Date: 20220423
  Serious: Yes (Hospitalization, Other)
  Sender: FDA-Public Use
  Company Number: DE-ABBVIE-22K-062-4269503-00

PATIENT
  Age: 54 Year
  Sex: Male
  Weight: 88 kg

DRUGS (1)
  1. GLECAPREVIR\PIBRENTASVIR [Suspect]
     Active Substance: GLECAPREVIR\PIBRENTASVIR
     Indication: Chronic hepatitis C
     Route: 048
     Dates: start: 20190917, end: 20191112

REACTIONS (11)
  - Road traffic accident [Unknown]
  - Shoulder operation [Unknown]
  - Fibrosis [Unknown]
  - Weight increased [Unknown]
  - Accessory spleen [Unknown]
  - Liver function test increased [Recovered/Resolved]
  - Gamma-glutamyltransferase increased [Recovered/Resolved]
  - Alanine aminotransferase increased [Recovered/Resolved]
  - Hepatic steatosis [Recovered/Resolved]
  - Liver injury [Recovered/Resolved]
  - Pancreatic steatosis [Recovered/Resolved]

NARRATIVE: CASE EVENT DATE: 20190101
